FAERS Safety Report 8395855-2 (Version None)
Quarter: 2012Q1

REPORT INFORMATION
  Report Type: 
  Country: None (occurrence: None)
  Receive Date: 20120323
  Receipt Date: 20110330
  Transmission Date: 20120608
  Serious: Yes (Other)
  Sender: FDA-Public Use
  Company Number: 163-21880-11033601

PATIENT
  Age: 53 Year
  Sex: Female
  Weight: 81.6475 kg

DRUGS (13)
  1. CENTRUM SILVER (CENTRUM SILVER) [Concomitant]
  2. NEURONTIN [Concomitant]
  3. REVLIMID [Suspect]
     Indication: MULTIPLE MYELOMA
     Dosage: 25 MG, 1 IN 1 D, PO ; 15 MG, DAILY X 21 DAYS, PO
     Route: 048
     Dates: start: 20091222, end: 20100101
  4. REVLIMID [Suspect]
     Indication: MULTIPLE MYELOMA
     Dosage: 25 MG, 1 IN 1 D, PO ; 15 MG, DAILY X 21 DAYS, PO
     Route: 048
     Dates: start: 20101201
  5. AMBIEN [Concomitant]
  6. NEXIUM [Concomitant]
  7. DIOVAN [Concomitant]
  8. DEXAMETHASONE [Concomitant]
  9. CALCIUM CARBONATE [Concomitant]
  10. VESICARE [Concomitant]
  11. PRAVASTATIN [Concomitant]
  12. ZOMETA [Concomitant]
  13. VITAMIN D [Concomitant]

REACTIONS (1)
  - SINUSITIS [None]
